FAERS Safety Report 5030901-5 (Version None)
Quarter: 2006Q2

REPORT INFORMATION
  Report Type: 
  Country: None (occurrence: None)
  Receive Date: 20060504
  Receipt Date: 20060125
  Transmission Date: 20061013
  Serious: Yes (Other)
  Sender: FDA-Public Use
  Company Number: 200511911BWH

PATIENT
  Age: 74 Year
  Sex: Male
  Weight: 57.6068 kg

DRUGS (10)
  1. LEVITRA [Suspect]
     Indication: ERECTILE DYSFUNCTION
     Dosage: SEE IMAGE
     Route: 048
     Dates: start: 20050913
  2. LIPITOR [Concomitant]
  3. LEXON [Concomitant]
  4. BLOOD PRESSURE PILL [Concomitant]
  5. SYNTHROID [Concomitant]
  6. LORTAB [Concomitant]
  7. LANOXIN [Concomitant]
  8. HUMULIN [Concomitant]
  9. NPH INSULIN [Concomitant]
  10. AVANDAMET [Concomitant]

REACTIONS (3)
  - DRUG INEFFECTIVE [None]
  - FEELING ABNORMAL [None]
  - HYPERTENSION [None]
